FAERS Safety Report 17729704 (Version 1)
Quarter: 2020Q2

REPORT INFORMATION
  Report Type: Spontaneous
  Country: CA (occurrence: CA)
  Receive Date: 20200430
  Receipt Date: 20200430
  Transmission Date: 20200714
  Serious: Yes (Other)
  Sender: FDA-Public Use
  Company Number: CA-B.I. PHARMACEUTICALS,INC./RIDGEFIELD-2020-BI-022405

PATIENT
  Age: 72 Year
  Sex: Female

DRUGS (2)
  1. MOBICOX [Suspect]
     Active Substance: MELOXICAM
     Indication: PAIN
     Route: 048
  2. IBUPROFEN. [Suspect]
     Active Substance: IBUPROFEN
     Indication: PAIN
     Route: 048

REACTIONS (1)
  - Pain in extremity [Unknown]
